FAERS Safety Report 15743063 (Version 1)
Quarter: 2018Q4

REPORT INFORMATION
  Report Type: Spontaneous
  Country: US (occurrence: US)
  Receive Date: 20181220
  Receipt Date: 20181220
  Transmission Date: 20190205
  Serious: Yes (Other)
  Sender: FDA-Public Use
  Company Number: US-COLGATE PALMOLIVE COMPANY-20181202968

PATIENT
  Age: 78 Year
  Sex: Female

DRUGS (4)
  1. COL TP SENSITIVE UNSPECIFIED [Suspect]
     Active Substance: POTASSIUM NITRATE\SODIUM FLUORIDE
     Dosage: PEA SIZE AMOUNT, BID
     Route: 048
     Dates: start: 201805
  2. COLGATE TOTAL WHITENING [Suspect]
     Active Substance: SODIUM FLUORIDE\TRICLOSAN
     Dosage: PEA SIZE AMOUNT, BID
     Route: 048
  3. COLGATE TOTAL ADVANCED PRO-SHIELD PEPPERMINT BLAST [Suspect]
     Active Substance: CETYLPYRIDINIUM CHLORIDE
     Dosage: CAP FULL, SOMETIMES SHE WILL DILUTE IT WITH WATER, BID
     Route: 048
     Dates: start: 201804
  4. COL TP OPTIC WHITE UNSPECIFIED [Suspect]
     Active Substance: SODIUM MONOFLUOROPHOSPHATE
     Dosage: PEA SIZE AMOUNT, BID
     Route: 048

REACTIONS (2)
  - Colon cancer [Unknown]
  - Oral discomfort [Recovered/Resolved]

NARRATIVE: CASE EVENT DATE: 201712
